FAERS Safety Report 23310058 (Version 1)
Quarter: 2023Q4

REPORT INFORMATION
  Report Type: Spontaneous
  Country: NL (occurrence: NL)
  Receive Date: 20231218
  Receipt Date: 20231218
  Transmission Date: 20240109
  Serious: Yes (Death, Life-Threatening, Hospitalization)
  Sender: FDA-Public Use
  Company Number: None

PATIENT
  Age: 70 Year
  Weight: 85 kg

DRUGS (10)
  1. PREDNISONE [Suspect]
     Active Substance: PREDNISONE
     Indication: Pneumocystis jirovecii pneumonia
     Dosage: TABLET, 20 MG (MILLIGRAM)
     Route: 065
     Dates: start: 20230818
  2. FUROSEMIDE [Concomitant]
     Active Substance: FUROSEMIDE
     Dosage: TABLET, 40 MG (MILLIGRAM)
  3. MACROGOL / FORLAX [Concomitant]
     Dosage: POWDER FOR ORAL SOLUTION, 10 G (GRAMS)
  4. SULFAMETHOXAZOLE\TRIMETHOPRIM [Concomitant]
     Active Substance: SULFAMETHOXAZOLE\TRIMETHOPRIM
     Dosage: TABLET, 160/800 MG
  5. ALBUTEROL [Concomitant]
     Active Substance: ALBUTEROL
     Dosage: AEROSOL, 100 ?G/DOSIS (MICROGRAM PER DOSIS)
  6. ACETAMINOPHEN [Concomitant]
     Active Substance: ACETAMINOPHEN
     Dosage: SUPPOSITORY, 1000 MG (MILLIGRAM)
  7. TEMAZEPAM [Concomitant]
     Active Substance: TEMAZEPAM
     Dosage: CAPSULE, 10 MG (MILLIGRAM)
  8. TAMOXIFEN [Concomitant]
     Active Substance: TAMOXIFEN
     Dosage: TABLET, 20 MG (MILLIGRAM)
  9. DIGOXINE / LANOXIN [Concomitant]
     Dosage: TABLET, 0,125 MG (MILLIGRAM)
  10. FAMOTIDINE [Suspect]
     Active Substance: FAMOTIDINE
     Indication: Prophylaxis against gastrointestinal ulcer
     Route: 065
     Dates: start: 20230808, end: 20230905

REACTIONS (1)
  - Duodenal ulcer perforation [Fatal]
